FAERS Safety Report 5843317-6 (Version None)
Quarter: 2008Q3

REPORT INFORMATION
  Report Type: 
  Country: None (occurrence: None)
  Receive Date: 20080813
  Receipt Date: 20080610
  Transmission Date: 20090109
  Serious: No
  Sender: FDA-Public Use
  Company Number: US-BAYER-200812704BCC

PATIENT
  Age: 17 Month
  Sex: Female
  Weight: 10 kg

DRUGS (1)
  1. ALEVE [Suspect]
     Route: 048
     Dates: start: 20080610

REACTIONS (1)
  - NO ADVERSE EVENT [None]
